FAERS Safety Report 9795270 (Version 2)
Quarter: 2014Q1

REPORT INFORMATION
  Report Type: Spontaneous
  Country: MX (occurrence: MX)
  Receive Date: 20140103
  Receipt Date: 20140115
  Transmission Date: 20141002
  Serious: Yes (Hospitalization)
  Sender: FDA-Public Use
  Company Number: MX-AMGEN-MEXSP2013091686

PATIENT
  Age: 67 Year
  Sex: Male

DRUGS (8)
  1. NEUPOGEN [Suspect]
     Indication: COLONY STIMULATING FACTOR THERAPY
     Dosage: CYCLE 3:5 DOSES ADMINISTERED DAY 8-12 (300 MG)
     Route: 065
  2. NEUPOGEN [Suspect]
     Dosage: CYCLE 4:6 DOSES ADMINISTERED DAY 9-14 (300 MG)
     Route: 065
  3. VINCRISTINE [Suspect]
     Indication: NON-HODGKIN^S LYMPHOMA
     Dosage: DAY 1 EVERY 3 WEEKS (2 MG, 1 IN 3 WK)
     Route: 065
  4. VINCRISTINE [Suspect]
     Dosage: DAY 1 EVERY 3 WEEKS (2 MG, 1 IN 3 WK)
     Route: 065
  5. PREDNISONE [Suspect]
     Indication: NON-HODGKIN^S LYMPHOMA
     Dosage: DAY 1-5 EVERY 3 WEEKS (100 MG, 1 IN 3 WK)
     Route: 065
  6. PREDNISONE [Suspect]
     Dosage: DAY 1-5 EVERY 3 WEEKS (100 MG, 1 IN 3 WK)
     Route: 065
  7. CYCLOPHOSPHAMIDE [Suspect]
     Indication: NON-HODGKIN^S LYMPHOMA
     Dosage: DAY 1 EVERY 3 WEEKS (750 MG,1 IN 3 WK)
     Route: 065
  8. CYCLOPHOSPHAMIDE [Suspect]
     Dosage: DAY 1 EVERY 3 WEEKS (750 MG,1 IN 3 WK)
     Route: 065

REACTIONS (2)
  - Neutropenia [Unknown]
  - Febrile neutropenia [Unknown]
